FAERS Safety Report 6402762-0 (Version None)
Quarter: 2009Q4

REPORT INFORMATION
  Report Type: 
  Country: None (occurrence: None)
  Receive Date: 20091016
  Receipt Date: 20091008
  Transmission Date: 20100525
  Serious: Yes (Death, Hospitalization)
  Sender: FDA-Public Use
  Company Number: GB-RANBAXY-2009RR-28535

PATIENT
  Age: 20 Year
  Sex: Male
  Weight: 45 kg

DRUGS (2)
  1. PARACETAMOL [Suspect]
     Dosage: 1 G, QID
  2. RANCEPINE [Suspect]
     Indication: EPILEPSY

REACTIONS (3)
  - ACUTE HEPATIC FAILURE [None]
  - GASTRIC PERFORATION [None]
  - MULTI-ORGAN FAILURE [None]
